FAERS Safety Report 6782132-6 (Version None)
Quarter: 2010Q2

REPORT INFORMATION
  Report Type: 
  Country: None (occurrence: None)
  Receive Date: 20100621
  Receipt Date: 20100609
  Transmission Date: 20101027
  Serious: Yes (Hospitalization)
  Sender: FDA-Public Use
  Company Number: GB-MERCK-1006GBR00063

PATIENT
  Age: 53 Year
  Sex: Male

DRUGS (2)
  1. INVANZ [Suspect]
     Indication: LIVER ABSCESS
     Route: 042
  2. METRONIDAZOLE [Concomitant]
     Route: 042

REACTIONS (3)
  - ANAEMIA [None]
  - BRAIN ABSCESS [None]
  - OROPHARYNGEAL PAIN [None]
